FAERS Safety Report 12903739 (Version 3)
Quarter: 2016Q4

REPORT INFORMATION
  Report Type: Spontaneous
  Country: US (occurrence: US)
  Receive Date: 20161102
  Receipt Date: 20161111
  Transmission Date: 20170207
  Serious: Yes (Hospitalization, Other)
  Sender: FDA-Public Use
  Company Number: US-HORIZON-RAV-0231-2016

PATIENT
  Age: 14 Year
  Sex: Male

DRUGS (4)
  1. RAVICTI [Suspect]
     Active Substance: GLYCEROL PHENYLBUTYRATE
     Indication: ARGININOSUCCINATE SYNTHETASE DEFICIENCY
     Dosage: 5.5 ML TID
     Dates: start: 20150528
  2. ANAMIX JR [Concomitant]
  3. PEDIASURE [Concomitant]
     Active Substance: VITAMINS
     Dosage: TWO BOTTLES
  4. ARGININE [Concomitant]
     Active Substance: ARGININE
     Dosage: 6 ML

REACTIONS (6)
  - Anxiety [Unknown]
  - Hyperammonaemia [Recovered/Resolved]
  - Nasopharyngitis [Unknown]
  - Asthenia [Unknown]
  - Walking disability [Unknown]
  - Irritability [Unknown]

NARRATIVE: CASE EVENT DATE: 20161023
